FAERS Safety Report 9299495 (Version 3)
Quarter: 2013Q2

REPORT INFORMATION
  Report Type: Report from Study
  Country: RO (occurrence: RO)
  Receive Date: 20130521
  Receipt Date: 20130618
  Transmission Date: 20140414
  Serious: Yes (Other)
  Sender: FDA-Public Use
  Company Number: RO-ROCHE-1225340

PATIENT
  Age: 57 Year
  Sex: Female
  Weight: 60 kg

DRUGS (9)
  1. RITUXIMAB [Suspect]
     Indication: B-CELL LYMPHOMA
     Route: 042
     Dates: start: 20130128
  2. CYCLOPHOSPHAMIDE [Concomitant]
     Indication: B-CELL LYMPHOMA
     Route: 042
     Dates: start: 20130128
  3. DOXORUBICIN [Concomitant]
     Indication: B-CELL LYMPHOMA
     Route: 042
     Dates: start: 20130128
  4. VINCRISTINE [Concomitant]
     Indication: B-CELL LYMPHOMA
     Route: 042
     Dates: start: 20130128
  5. PREDNISONE [Concomitant]
     Indication: B-CELL LYMPHOMA
     Route: 042
     Dates: start: 20130128
  6. ASPENTER [Concomitant]
     Indication: B-CELL LYMPHOMA
     Route: 048
     Dates: start: 20130128
  7. ACETAMINOPHEN [Concomitant]
     Indication: PROPHYLAXIS
     Route: 065
     Dates: start: 20130415, end: 20130415
  8. BISEPTOL [Concomitant]
     Indication: PROPHYLAXIS
     Route: 065
     Dates: start: 20130415
  9. ACICLOVIR [Concomitant]
     Indication: PROPHYLAXIS
     Route: 065
     Dates: start: 20130415

REACTIONS (2)
  - Hepatocellular injury [Recovering/Resolving]
  - Cholestasis [Not Recovered/Not Resolved]
